FAERS Safety Report 5892237-X (Version None)
Quarter: 2008Q3

REPORT INFORMATION
  Report Type: 
  Country: None (occurrence: None)
  Receive Date: 20080919
  Receipt Date: 20080912
  Transmission Date: 20090109
  Serious: Yes (Other)
  Sender: FDA-Public Use
  Company Number: 2008SP019017

PATIENT

DRUGS (1)
  1. MIRALAX [Suspect]
     Indication: DRUG USE FOR UNKNOWN INDICATION
     Dosage: QD PO
     Route: 048
     Dates: start: 20080815

REACTIONS (3)
  - INCORRECT DRUG ADMINISTRATION DURATION [None]
  - LARGE INTESTINAL OBSTRUCTION [None]
  - PAIN [None]
